FAERS Safety Report 4840764-6 (Version None)
Quarter: 2005Q4

REPORT INFORMATION
  Report Type: 
  Country: None (occurrence: None)
  Receive Date: 20051027
  Receipt Date: 20050420
  Transmission Date: 20060501
  Serious: Yes (Hospitalization, Other)
  Sender: FDA-Public Use
  Company Number: HQWYE176721APR05

PATIENT
  Age: 68 Year
  Sex: Female

DRUGS (4)
  1. PREMARIN [Suspect]
     Indication: HOT FLUSH
     Dosage: 1.25 MG 1X PER 1 DAY,
     Dates: start: 19600101
  2. ESTRATEST [Suspect]
     Dosage: 1.25 MG/ 2.5 MG DAILY,
     Dates: start: 19980101, end: 20000101
  3. VIOXX [Concomitant]
  4. PREVACID [Concomitant]

REACTIONS (1)
  - BREAST CANCER [None]
